FAERS Safety Report 8841720 (Version 2)
Quarter: 2012Q4

REPORT INFORMATION
  Report Type: Spontaneous
  Country: US (occurrence: None)
  Receive Date: 20121011
  Receipt Date: 20121018
  Transmission Date: 20130627
  Serious: Yes (Hospitalization, Other)
  Sender: FDA-Public Use
  Company Number: 1436127

PATIENT
  Age: 71 Year
  Sex: Male
  Weight: 75.91 kg

DRUGS (9)
  1. ONDANSETRON [Suspect]
     Indication: DRUG USE FOR UNKNOWN INDICATION
     Route: 042
     Dates: start: 20120926, end: 20120926
  2. FENOFIBRATE [Concomitant]
  3. IBUPROFEN [Concomitant]
  4. MEGESTROL [Concomitant]
  5. METOPROLOL TARTRATE [Concomitant]
  6. POTASSIUM CHLORIDE [Concomitant]
  7. (OXYCODONE) [Concomitant]
  8. SENNOSIDE /00571901/ [Concomitant]
  9. MIDODRINE [Concomitant]

REACTIONS (6)
  - Psychotic disorder [None]
  - Hallucination [None]
  - Restlessness [None]
  - Disorientation [None]
  - Agitation [None]
  - Panic attack [None]
